FAERS Safety Report 13245790 (Version 2)
Quarter: 2017Q1

REPORT INFORMATION
  Report Type: Report from Study
  Country: CA (occurrence: CA)
  Receive Date: 20170217
  Receipt Date: 20170329
  Transmission Date: 20170428
  Serious: Yes (Other)
  Sender: FDA-Public Use
  Company Number: CA-JNJFOC-20170214846

PATIENT
  Age: 46 Year
  Sex: Female
  Weight: 82 kg

DRUGS (2)
  1. ACETAMINOPHEN. [Concomitant]
     Active Substance: ACETAMINOPHEN
     Indication: PREMEDICATION
     Dosage: DOSE 1000 (UNIT UNSPECIFIED)
     Route: 048
  2. REMICADE [Suspect]
     Active Substance: INFLIXIMAB
     Indication: COLITIS ULCERATIVE
     Route: 042
     Dates: start: 20150601

REACTIONS (5)
  - Product use issue [Unknown]
  - Haemorrhoids [Recovered/Resolved]
  - Pain in extremity [Unknown]
  - Precancerous cells present [Unknown]
  - Off label use [Unknown]

NARRATIVE: CASE EVENT DATE: 201506
